FAERS Safety Report 9356745 (Version 1)
Quarter: 2013Q2

REPORT INFORMATION
  Report Type: Spontaneous
  Country: BR (occurrence: BR)
  Receive Date: 20130619
  Receipt Date: 20130619
  Transmission Date: 20140414
  Serious: Yes (Other)
  Sender: FDA-Public Use
  Company Number: PHHY2013BR061977

PATIENT
  Sex: Male
  Weight: 53 kg

DRUGS (1)
  1. RITALIN LA [Suspect]
     Indication: DISTURBANCE IN ATTENTION
     Dosage: 20 MG, 1 CAPSULE A DAY
     Route: 048
     Dates: end: 20130610

REACTIONS (14)
  - Rebound effect [Recovered/Resolved]
  - Major depression [Recovered/Resolved]
  - Feeling abnormal [Recovered/Resolved]
  - Speech disorder [Recovered/Resolved]
  - Movement disorder [Recovered/Resolved]
  - Feeling hot [Recovered/Resolved]
  - Fear [Recovered/Resolved]
  - Binge eating [Not Recovered/Not Resolved]
  - Hyperhidrosis [Recovered/Resolved]
  - Hyposomnia [Recovered/Resolved]
  - Anxiety [Recovered/Resolved]
  - Nervousness [Recovered/Resolved]
  - Somnolence [Recovered/Resolved]
  - Insomnia [Recovered/Resolved]
